FAERS Safety Report 7257356-4 (Version None)
Quarter: 2011Q1

REPORT INFORMATION
  Report Type: 
  Country: None (occurrence: None)
  Receive Date: 20110129
  Receipt Date: 20100818
  Transmission Date: 20110831
  Serious: No
  Sender: FDA-Public Use
  Company Number: US-ABBOTT-10P-163-0664765-00

PATIENT
  Age: 68 Year
  Sex: Female

DRUGS (9)
  1. HUMIRA [Suspect]
     Indication: RHEUMATOID ARTHRITIS
     Dates: start: 20100718
  2. LORAZEPAM [Concomitant]
     Indication: ANXIETY
  3. METOPROLOL [Concomitant]
     Indication: HEART RATE IRREGULAR
  4. OMEPRAZOLE [Concomitant]
     Indication: GASTROOESOPHAGEAL REFLUX DISEASE
  5. CELEBREX [Concomitant]
     Indication: ARTHRITIS
  6. PREDNISONE [Concomitant]
     Indication: RHEUMATOID ARTHRITIS
  7. METHOTREXATE [Concomitant]
     Indication: RHEUMATOID ARTHRITIS
  8. LISINOPRIL [Concomitant]
     Indication: BLOOD PRESSURE INCREASED
     Dosage: 5MG 1/2 TABLET
  9. LEFLUNOMIDE [Concomitant]
     Indication: ARTHRITIS

REACTIONS (2)
  - MUSCULAR WEAKNESS [None]
  - LIQUID PRODUCT PHYSICAL ISSUE [None]
